FAERS Safety Report 18719756 (Version 1)
Quarter: 2021Q1

REPORT INFORMATION
  Report Type: Spontaneous
  Country: US (occurrence: US)
  Receive Date: 20210109
  Receipt Date: 20210109
  Transmission Date: 20210419
  Serious: No
  Sender: FDA-Public Use
  Company Number: US-BION-008502

PATIENT

DRUGS (1)
  1. IBUPROFEN/DIPHENHYDRAMINE (PM) CAPSULES 120 CT [Suspect]
     Active Substance: DIPHENHYDRAMINE\IBUPROFEN
     Indication: PRODUCT USED FOR UNKNOWN INDICATION

REACTIONS (3)
  - Product taste abnormal [Unknown]
  - Feeling abnormal [Unknown]
  - Product physical consistency issue [Unknown]
